FAERS Safety Report 21610549 (Version 1)
Quarter: 2022Q4

REPORT INFORMATION
  Report Type: Spontaneous
  Country: CY (occurrence: CY)
  Receive Date: 20221117
  Receipt Date: 20221117
  Transmission Date: 20230112
  Serious: Yes (Hospitalization)
  Sender: FDA-Public Use
  Company Number: CY-PFIZER INC-PV202200100312

PATIENT
  Age: 70 Year
  Sex: Male

DRUGS (9)
  1. VYNDAQEL [Suspect]
     Active Substance: TAFAMIDIS MEGLUMINE
     Dosage: 61 MG
     Dates: start: 202211
  2. ATORVASTATIN [Concomitant]
     Active Substance: ATORVASTATIN
     Dosage: UNK
  3. FLUPENTIXOL DIHYDROCHLORIDE\MELITRACEN HYDROCHLORIDE [Concomitant]
     Active Substance: FLUPENTIXOL DIHYDROCHLORIDE\MELITRACEN HYDROCHLORIDE
     Dosage: UNK
  4. HYDROCHLOROTHIAZIDE [Concomitant]
     Active Substance: HYDROCHLOROTHIAZIDE
     Dosage: UNK
  5. ALLOPURINOL [Concomitant]
     Active Substance: ALLOPURINOL
     Dosage: UNK
  6. METOPROLOL SUCCINATE [Concomitant]
     Active Substance: METOPROLOL SUCCINATE
     Dosage: UNK
  7. LORAZEPAM [Concomitant]
     Active Substance: LORAZEPAM
     Dosage: UNK
  8. IMDUR [Concomitant]
     Active Substance: ISOSORBIDE MONONITRATE
     Dosage: UNK
  9. RIVAROXABAN [Concomitant]
     Active Substance: RIVAROXABAN
     Dosage: UNK

REACTIONS (5)
  - Hypersensitivity [Unknown]
  - Face oedema [Unknown]
  - Eye oedema [Unknown]
  - Lip oedema [Unknown]
  - Speech disorder [Unknown]
